FAERS Safety Report 10267289 (Version 1)
Quarter: 2014Q2

REPORT INFORMATION
  Report Type: Spontaneous
  Country: FR (occurrence: FR)
  Receive Date: 20140630
  Receipt Date: 20140630
  Transmission Date: 20141212
  Serious: Yes (Hospitalization)
  Sender: FDA-Public Use
  Company Number: PHHY2014FR079263

PATIENT
  Age: 77 Year
  Sex: Male

DRUGS (16)
  1. ESIDREX [Suspect]
     Indication: HYPERTENSION
     Dosage: 25 MG, QD
     Route: 048
     Dates: end: 20140411
  2. CELIPROLOL [Suspect]
     Indication: HYPERTENSION
     Dosage: 200 MG, QD
     Route: 048
  3. CORVASAL [Suspect]
     Dosage: 4 MG, TID
     Route: 048
     Dates: end: 20140411
  4. FUROSEMIDE ARROW [Suspect]
     Indication: HYPERTENSION
     Dosage: 40 MG, QD (SCORED TABLET)
     Route: 048
     Dates: end: 20140411
  5. VALSARTAN EG [Suspect]
     Indication: HYPERTENSION
     Dosage: 160 MG, QD
     Route: 048
  6. MADOPAR [Suspect]
     Indication: PARKINSON^S DISEASE
     Dosage: 1 DF, QID (200 MG LEVO, 50 MG BEN)
     Route: 048
  7. MADOPAR LT [Suspect]
     Indication: PARKINSON^S DISEASE
     Dosage: 1 DF, QD (100 MG LEVO, 25 MG BEN)
     Route: 048
  8. SIFROL [Suspect]
     Indication: PARKINSON^S DISEASE
     Dosage: 1.57 MG, QD
     Route: 048
  9. AZILECT [Suspect]
     Indication: PARKINSON^S DISEASE
     Dosage: 1 MG, QD
     Route: 048
  10. MONOCRIXO [Suspect]
     Dosage: 150 MG, QD
     Route: 048
     Dates: end: 20140411
  11. TAMSULOSINE EG [Suspect]
     Dosage: 0.4 MG, QD
     Route: 048
  12. SIMVASTATIN [Concomitant]
     Dosage: 20 MG, QD
  13. PREVISCAN//FLUINDIONE [Concomitant]
     Dosage: DEPENDING ON INR
  14. PANTOPRAZOLE [Concomitant]
     Dosage: 20 MG, QD
  15. KLIPAL CODEINE [Concomitant]
     Dosage: 1 DF, QID (600 MG PARA, 50 MG CODEINE)
  16. LUMIGAN [Concomitant]
     Dosage: UNK UKN, UNK

REACTIONS (6)
  - Fall [Recovered/Resolved]
  - Orthostatic hypotension [Recovered/Resolved]
  - Malaise [None]
  - Loss of consciousness [None]
  - Head injury [None]
  - Cerebral haematoma [None]
